FAERS Safety Report 6642210-9 (Version None)
Quarter: 2010Q1

REPORT INFORMATION
  Report Type: 
  Country: None (occurrence: None)
  Receive Date: 20100319
  Receipt Date: 20100310
  Transmission Date: 20100710
  Serious: Yes (Hospitalization, Other)
  Sender: FDA-Public Use
  Company Number: KR-BAYER-201019182GPV

PATIENT
  Age: 42 Year
  Sex: Male

DRUGS (1)
  1. MAGNEVIST [Suspect]
     Indication: SPINAL MYELOGRAM
     Route: 037

REACTIONS (11)
  - APHASIA [None]
  - CONFUSIONAL STATE [None]
  - CONVULSION [None]
  - DYSKINESIA [None]
  - MUSCLE RIGIDITY [None]
  - MUSCULOSKELETAL STIFFNESS [None]
  - NEUROTOXICITY [None]
  - OPTIC ATROPHY [None]
  - STUPOR [None]
  - VISUAL IMPAIRMENT [None]
  - VOMITING [None]
